FAERS Safety Report 8593624 (Version 3)
Quarter: 2014Q1

REPORT INFORMATION
  Report Type: Spontaneous
  Country: US (occurrence: US)
  Receive Date: 20120604
  Receipt Date: 20140108
  Transmission Date: 20141002
  Serious: Yes (Hospitalization, Disabling, Other)
  Sender: FDA-Public Use
  Company Number: US-ASTRAZENECA-2012SE35012

PATIENT
  Age: 640 Month
  Sex: Female

DRUGS (30)
  1. NEXIUM [Suspect]
     Indication: GASTROOESOPHAGEAL REFLUX DISEASE
     Dosage: ONCE A DAY
     Route: 048
     Dates: start: 2006
  2. NEXIUM [Suspect]
     Indication: GASTROOESOPHAGEAL REFLUX DISEASE
     Route: 048
     Dates: start: 20060201
  3. NEXIUM [Suspect]
     Indication: GASTROOESOPHAGEAL REFLUX DISEASE
     Route: 048
     Dates: start: 20060807
  4. PRILOSEC [Suspect]
     Route: 048
  5. PRILOSEC OTC [Suspect]
     Indication: GASTRIC PH DECREASED
     Route: 048
     Dates: start: 20110616
  6. PROTONIX [Concomitant]
  7. KAPIDEX [Concomitant]
  8. ZANTAC [Concomitant]
     Dates: start: 20011002
  9. TAGAMET [Concomitant]
  10. MILK OF MAGNESIA [Concomitant]
     Dates: start: 1999
  11. TUMS [Concomitant]
     Dates: start: 2000
  12. VALIUM [Concomitant]
     Dates: start: 20050915
  13. ATARAX [Concomitant]
  14. DARVOCET [Concomitant]
     Indication: PAIN
  15. PEPCID [Concomitant]
     Indication: GASTRIC PH DECREASED
     Dates: start: 20010503
  16. SYNTHROID [Concomitant]
     Dates: start: 20060825
  17. SYNTHROID [Concomitant]
     Dates: start: 20061127
  18. SYNTHROID [Concomitant]
     Dates: start: 20111103
  19. MEPERIDINE [Concomitant]
     Dates: start: 20110311
  20. CYMBALTA [Concomitant]
     Dates: start: 20070113
  21. RANITIDINE [Concomitant]
     Dates: start: 20070616
  22. LYRICA [Concomitant]
     Dates: start: 20071025
  23. BUPROPION HCL ER [Concomitant]
     Dates: start: 20071130
  24. MYLANTA [Concomitant]
     Dates: start: 2005
  25. MYLANTA [Concomitant]
     Dates: start: 20080201
  26. METHYLPREDNISOLONE [Concomitant]
     Dates: start: 20080417
  27. PREDNISONE [Concomitant]
     Dates: start: 20080520
  28. AMLODIPINE BESYLATE [Concomitant]
     Dates: start: 20080429
  29. PREVACID [Concomitant]
     Dates: start: 20110314
  30. LORAZEPAM [Concomitant]
     Dates: start: 20121031

REACTIONS (15)
  - Musculoskeletal pain [Unknown]
  - Neoplasm malignant [Unknown]
  - Bone disorder [Unknown]
  - Back disorder [Unknown]
  - Endometrial cancer [Unknown]
  - Neck pain [Unknown]
  - Thyroid cancer [Unknown]
  - Osteoporosis [Unknown]
  - Multiple fractures [Unknown]
  - Arthropathy [Unknown]
  - Bone loss [Unknown]
  - Bone pain [Unknown]
  - Arthritis [Unknown]
  - Lung disorder [Unknown]
  - Osteoarthritis [Unknown]
